FAERS Safety Report 10471844 (Version 1)
Quarter: 2014Q3

REPORT INFORMATION
  Report Type: Report from Study
  Country: DE (occurrence: DE)
  Receive Date: 20140924
  Receipt Date: 20140924
  Transmission Date: 20150326
  Serious: Yes (Death, Other)
  Sender: FDA-Public Use
  Company Number: DE-UCBSA-2014012289

PATIENT
  Age: 77 Year
  Sex: Female
  Weight: 60 kg

DRUGS (8)
  1. LACOSAMIDE [Suspect]
     Active Substance: LACOSAMIDE
     Dosage: 2 P.M. AND 10 P.M. 200 MG
     Route: 042
     Dates: start: 20130206, end: 20130206
  2. LACOSAMIDE [Suspect]
     Active Substance: LACOSAMIDE
     Dosage: 10 A.M. AND 6 P.M 200 MG
     Route: 042
     Dates: start: 20130215
  3. LACOSAMIDE [Suspect]
     Active Substance: LACOSAMIDE
     Indication: STATUS EPILEPTICUS
     Dosage: 200 MG AT 8 A.M. AND 6 P.M.
     Route: 042
     Dates: start: 20120522, end: 20120524
  4. LACOSAMIDE [Suspect]
     Active Substance: LACOSAMIDE
     Dosage: 10 A.M. , 6 P.M. AND 12 AT NIGHT 200 MG
     Route: 042
     Dates: start: 20130210, end: 20130210
  5. LACOSAMIDE [Suspect]
     Active Substance: LACOSAMIDE
     Dosage: 2 A.M. , 10 A.M. AND 6 P.M. 200 MG
     Route: 042
     Dates: start: 20130211, end: 20130214
  6. LACOSAMIDE [Suspect]
     Active Substance: LACOSAMIDE
     Dosage: 8 A.M. , 4 P.M. AND 12 AT NIGHT 200 MG
     Route: 042
     Dates: start: 20130207, end: 20130208
  7. LACOSAMIDE [Suspect]
     Active Substance: LACOSAMIDE
     Dosage: 8 A.M. , 4 P.M. AND 10 P.M. 200 MG
     Route: 042
     Dates: start: 20130209, end: 20130209
  8. LACOSAMIDE [Suspect]
     Active Substance: LACOSAMIDE
     Dosage: 200 MG AT 8 A.M
     Route: 042
     Dates: start: 20120525

REACTIONS (4)
  - Hepatic cirrhosis [Fatal]
  - Bradycardia [Recovered/Resolved]
  - Inappropriate schedule of drug administration [Unknown]
  - Overdose [Unknown]

NARRATIVE: CASE EVENT DATE: 20130207
